FAERS Safety Report 21407336 (Version 1)
Quarter: 2022Q4

REPORT INFORMATION
  Report Type: Spontaneous
  Country: US (occurrence: US)
  Receive Date: 20221004
  Receipt Date: 20221004
  Transmission Date: 20230113
  Serious: No
  Sender: FDA-Public Use
  Company Number: US-GILEAD-2022-0600149

PATIENT
  Age: 24 Year
  Sex: Male

DRUGS (2)
  1. DESCOVY [Suspect]
     Active Substance: EMTRICITABINE\TENOFOVIR ALAFENAMIDE FUMARATE
     Indication: Prophylaxis against HIV infection
     Dosage: UNK
     Route: 065
     Dates: start: 20220929
  2. TIVICAY [Suspect]
     Active Substance: DOLUTEGRAVIR SODIUM
     Indication: Product used for unknown indication
     Dosage: UNK
     Route: 065
     Dates: start: 2022

REACTIONS (6)
  - Nasopharyngitis [Unknown]
  - Headache [Unknown]
  - Nausea [Unknown]
  - Oropharyngeal pain [Unknown]
  - Lethargy [Unknown]
  - Product label issue [Unknown]

NARRATIVE: CASE EVENT DATE: 20220929
